FAERS Safety Report 15387458 (Version 2)
Quarter: 2018Q3

REPORT INFORMATION
  Report Type: Spontaneous
  Country: US (occurrence: US)
  Receive Date: 20180914
  Receipt Date: 20180928
  Transmission Date: 20181010
  Serious: Yes (Other)
  Sender: FDA-Public Use
  Company Number: US-ARALEZ PHARMACEUTICALS R+D INC.-2018-ARA-002094

PATIENT
  Sex: Female
  Weight: 88.89 kg

DRUGS (7)
  1. NORVASC [Concomitant]
     Active Substance: AMLODIPINE BESYLATE
     Indication: PRODUCT USED FOR UNKNOWN INDICATION
     Dosage: UNK
  2. CLONIDINE. [Concomitant]
     Active Substance: CLONIDINE
     Indication: PRODUCT USED FOR UNKNOWN INDICATION
     Dosage: UNK
  3. TOPROL XL [Suspect]
     Active Substance: METOPROLOL SUCCINATE
     Indication: HYPERTENSION
     Dosage: 200 MG, QD
     Dates: end: 20180731
  4. TOPROL XL [Suspect]
     Active Substance: METOPROLOL SUCCINATE
     Indication: MITRAL VALVE PROLAPSE
     Dosage: 400 MG, QD
     Dates: start: 201801
  5. MAXZIDE [Concomitant]
     Active Substance: HYDROCHLOROTHIAZIDE\TRIAMTERENE
     Indication: PRODUCT USED FOR UNKNOWN INDICATION
     Dosage: UNK
  6. DIURETIC                           /00022001/ [Concomitant]
     Active Substance: HYDROCHLOROTHIAZIDE
     Indication: PRODUCT USED FOR UNKNOWN INDICATION
     Dosage: UNK
  7. LEVOTHYROXINE. [Concomitant]
     Active Substance: LEVOTHYROXINE
     Indication: PRODUCT USED FOR UNKNOWN INDICATION
     Dosage: UNK

REACTIONS (17)
  - Blood potassium abnormal [Unknown]
  - Oxygen saturation abnormal [Unknown]
  - Abdominal pain [Unknown]
  - Alopecia [Unknown]
  - Abnormal dreams [Unknown]
  - Bronchospasm [Not Recovered/Not Resolved]
  - Faeces discoloured [Unknown]
  - Drug ineffective [Not Recovered/Not Resolved]
  - Off label use [Recovered/Resolved]
  - Weight increased [Unknown]
  - Thyroid disorder [Unknown]
  - Blood glucose fluctuation [Not Recovered/Not Resolved]
  - White blood cell count abnormal [Unknown]
  - Thrombocytopenia [Unknown]
  - Low density lipoprotein increased [Unknown]
  - Blood glucose increased [Not Recovered/Not Resolved]
  - Hyperhidrosis [Unknown]
